FAERS Safety Report 14333695 (Version 1)
Quarter: 2017Q4

REPORT INFORMATION
  Report Type: Spontaneous
  Country: DE (occurrence: DE)
  Receive Date: 20171228
  Receipt Date: 20171228
  Transmission Date: 20180321
  Serious: Yes (Hospitalization)
  Sender: FDA-Public Use
  Company Number: DE-PFIZER INC-2017550686

PATIENT
  Age: 18 Year
  Sex: Female
  Weight: 65 kg

DRUGS (3)
  1. QUENTIAX [Suspect]
     Active Substance: QUETIAPINE FUMARATE
     Dosage: 500 MG, SINGLE DOSE
     Route: 048
     Dates: start: 20171207, end: 20171207
  2. CITALOPRAM [Suspect]
     Active Substance: CITALOPRAM HYDROBROMIDE
     Dosage: 400 MG, SINGLE DOSE
     Route: 048
     Dates: start: 20171207, end: 20171207
  3. IBUPROFEN. [Suspect]
     Active Substance: IBUPROFEN
     Dosage: 3200 MG, SINGLE DOSE
     Route: 048
     Dates: start: 20171207, end: 20171207

REACTIONS (3)
  - Suicide attempt [Unknown]
  - Intentional overdose [Unknown]
  - Tachycardia [Unknown]

NARRATIVE: CASE EVENT DATE: 20171207
